FAERS Safety Report 13560888 (Version 1)
Quarter: 2017Q2

REPORT INFORMATION
  Report Type: Spontaneous
  Country: US (occurrence: US)
  Receive Date: 20170518
  Receipt Date: 20170518
  Transmission Date: 20170830
  Serious: No
  Sender: FDA-Public Use
  Company Number: US-ROCHE-1243147

PATIENT
  Weight: 90.8 kg

DRUGS (6)
  1. STINGING NETTLE [Concomitant]
     Active Substance: HERBALS
     Indication: SPINAL OSTEOARTHRITIS
     Route: 065
  2. DEVIL^S CLAW [Concomitant]
     Active Substance: HERBALS
     Indication: SPINAL OSTEOARTHRITIS
     Route: 065
  3. ZETIA [Concomitant]
     Active Substance: EZETIMIBE
     Indication: BLOOD CHOLESTEROL INCREASED
     Route: 065
  4. NAPROXEN SODIUM. [Suspect]
     Active Substance: NAPROXEN SODIUM
     Indication: SPINAL OSTEOARTHRITIS
     Route: 065
  5. NAPROXEN SODIUM. [Suspect]
     Active Substance: NAPROXEN SODIUM
     Indication: ARTHRITIS
  6. LIPITOR [Concomitant]
     Active Substance: ATORVASTATIN CALCIUM
     Indication: BLOOD CHOLESTEROL INCREASED
     Route: 065

REACTIONS (1)
  - Gastrointestinal disorder [Unknown]
